FAERS Safety Report 14634498 (Version 4)
Quarter: 2018Q2

REPORT INFORMATION
  Report Type: Spontaneous
  Country: US (occurrence: US)
  Receive Date: 20180314
  Receipt Date: 20180508
  Transmission Date: 20180711
  Serious: Yes (Death, Hospitalization, Other)
  Sender: FDA-Public Use
  Company Number: PHEH2018US009275

PATIENT
  Age: 74 Year
  Sex: Male

DRUGS (3)
  1. LENVIMA [Suspect]
     Active Substance: LENVATINIB
     Indication: RENAL CANCER
     Dosage: 10 MG, QD
     Route: 048
     Dates: start: 20180214
  2. AFINITOR [Suspect]
     Active Substance: EVEROLIMUS
     Indication: RENAL CANCER
     Dosage: 5 MG, QD
     Route: 048
     Dates: start: 20180214
  3. LENVIMA [Suspect]
     Active Substance: LENVATINIB
     Dosage: 18 MG, QD
     Route: 048
     Dates: start: 20180314

REACTIONS (14)
  - Electrocardiogram abnormal [Unknown]
  - Peripheral swelling [Unknown]
  - Confusional state [Unknown]
  - Fluid retention [Unknown]
  - Joint swelling [Unknown]
  - Pulmonary oedema [Unknown]
  - Cardiac failure congestive [Unknown]
  - Abdominal distension [Unknown]
  - Blood pressure increased [Unknown]
  - Death [Fatal]
  - Anxiety [Unknown]
  - Constipation [Unknown]
  - Asthenia [Unknown]
  - Glossodynia [Unknown]

NARRATIVE: CASE EVENT DATE: 20180430
